FAERS Safety Report 8017382 (Version 3)
Quarter: 2013Q2

REPORT INFORMATION
  Report Type: Report from Study
  Country: US (occurrence: US)
  Receive Date: 20110630
  Receipt Date: 20130409
  Transmission Date: 20140414
  Serious: Yes (Hospitalization)
  Sender: FDA-Public Use
  Company Number: US-UCBSA-035667

PATIENT
  Age: 20 Year
  Sex: Female
  Weight: 71.21 kg

DRUGS (8)
  1. CIMZIA [Suspect]
     Indication: CROHN^S DISEASE
     Route: 058
     Dates: start: 20110303
  2. CIMZIA [Suspect]
     Indication: CROHN^S DISEASE
     Route: 058
     Dates: start: 20101217, end: 20110117
  3. CIMZIA [Suspect]
     Indication: CROHN^S DISEASE
     Route: 058
     Dates: start: 20101105, end: 20101126
  4. PREDNISONE [Concomitant]
     Indication: CROHN^S DISEASE
     Dates: start: 201003, end: 201206
  5. DIPHENOXYLATE/ATROPINE [Concomitant]
     Indication: CROHN^S DISEASE
  6. DIPHENOXYLATE/ATROPINE [Concomitant]
     Indication: CROHN^S DISEASE
  7. VITAMIN D [Concomitant]
     Indication: CROHN^S DISEASE
  8. FLORAJEN 3 [Concomitant]

REACTIONS (1)
  - Pelvic inflammatory disease [Recovered/Resolved with Sequelae]
